FAERS Safety Report 9290191 (Version 3)
Quarter: 2013Q3

REPORT INFORMATION
  Report Type: Spontaneous
  Country: US (occurrence: None)
  Receive Date: 20130510
  Receipt Date: 20130703
  Transmission Date: 20140515
  Serious: Yes (Other)
  Sender: FDA-Public Use
  Company Number: ACO_35888_2013

PATIENT
  Age: 64 Year
  Sex: Male

DRUGS (16)
  1. AMPYRA [Suspect]
     Indication: PRODUCT USED FOR UNKNOWN INDICATION
     Dates: start: 20111007, end: 201304
  2. ASPIRIN [Concomitant]
  3. CALCIUM +D [Concomitant]
  4. VITAMIN D3 [Concomitant]
  5. FLOMAX [Concomitant]
  6. HYDROCHLOROTHIAZIDE [Concomitant]
  7. IBUPROFEN [Concomitant]
  8. BACLOFEN [Concomitant]
  9. MULTIVITAMIN [Concomitant]
  10. NASONEX [Concomitant]
  11. TYSABRI [Concomitant]
  12. ZOCORT HC [Concomitant]
  13. FLEXERIL [Concomitant]
  14. TAMSULOSIN [Concomitant]
  15. SIMVASTATIN [Concomitant]
  16. ATIVAN [Concomitant]

REACTIONS (25)
  - Convulsion [None]
  - Multiple sclerosis relapse [None]
  - Syncope [None]
  - Feeling hot [None]
  - Asthenia [None]
  - Insomnia [None]
  - Micturition urgency [None]
  - Blood potassium abnormal [None]
  - White blood cell count abnormal [None]
  - Blood chloride abnormal [None]
  - Carbon dioxide abnormal [None]
  - Blood glucose abnormal [None]
  - Protein total decreased [None]
  - Muscular weakness [None]
  - Muscle spasms [None]
  - Muscle spasticity [None]
  - Musculoskeletal pain [None]
  - Arthralgia [None]
  - Intervertebral disc degeneration [None]
  - Stress [None]
  - Urinary incontinence [None]
  - Nausea [None]
  - Dizziness [None]
  - Insomnia [None]
  - Back pain [None]
